FAERS Safety Report 6441498-7 (Version None)
Quarter: 2009Q4

REPORT INFORMATION
  Report Type: 
  Country: None (occurrence: None)
  Receive Date: 20091116
  Receipt Date: 20091110
  Transmission Date: 20100525
  Serious: Yes (Other)
  Sender: FDA-Public Use
  Company Number: B0600222A

PATIENT
  Sex: Male

DRUGS (5)
  1. RELENZA [Suspect]
     Indication: INFLUENZA
     Dosage: 10MG TWICE PER DAY
     Route: 055
     Dates: start: 20091020
  2. CALONAL [Concomitant]
     Dosage: 300MG PER DAY
     Route: 065
  3. ZITHROMAX [Concomitant]
     Indication: COUGH
     Dosage: 400MG PER DAY
     Route: 048
     Dates: start: 20091019
  4. HOKUNALIN [Concomitant]
     Route: 062
  5. ASVERIN [Concomitant]
     Indication: COUGH
     Dosage: 45MG PER DAY
     Route: 048

REACTIONS (1)
  - ABNORMAL BEHAVIOUR [None]
